FAERS Safety Report 4577983-2 (Version None)
Quarter: 2005Q1

REPORT INFORMATION
  Report Type: 
  Country: None (occurrence: None)
  Receive Date: 20050211
  Receipt Date: 20050131
  Transmission Date: 20050727
  Serious: Yes (Hospitalization)
  Sender: FDA-Public Use
  Company Number: GB-JNJFOC-20040707959

PATIENT
  Sex: Female

DRUGS (13)
  1. REMICADE [Suspect]
     Dosage: 5TH INFUSION
     Route: 042
  2. REMICADE [Suspect]
     Indication: RHEUMATOID ARTHRITIS
     Dosage: 4TH INFUSION
     Route: 042
  3. METHOTREXATE [Concomitant]
  4. FOLIC ACID [Concomitant]
  5. ACETAMINOPHEN [Concomitant]
  6. CALCICHEW [Concomitant]
  7. PREDNISOLONE [Concomitant]
  8. THYROXINE [Concomitant]
  9. BENDROFLUAZIDE [Concomitant]
  10. CO-PROXAMOL [Concomitant]
  11. CO-PROXAMOL [Concomitant]
  12. DICLOFENAC [Concomitant]
  13. FOSAMAX [Concomitant]

REACTIONS (4)
  - ANAPHYLACTIC REACTION [None]
  - BACK PAIN [None]
  - CONFUSIONAL STATE [None]
  - CYANOSIS [None]
